FAERS Safety Report 18160444 (Version 3)
Quarter: 2023Q4

REPORT INFORMATION
  Report Type: Spontaneous
  Country: GB (occurrence: GB)
  Receive Date: 20200818
  Receipt Date: 20231129
  Transmission Date: 20240109
  Serious: Yes (Death, Hospitalization, Other)
  Sender: FDA-Public Use
  Company Number: None

PATIENT
  Age: 48 Year
  Sex: Female

DRUGS (15)
  1. LEMTRADA [Suspect]
     Active Substance: ALEMTUZUMAB
     Indication: Relapsing-remitting multiple sclerosis
     Dosage: 12 MG, QD
     Route: 041
     Dates: start: 20180212, end: 20180216
  2. LEMTRADA [Suspect]
     Active Substance: ALEMTUZUMAB
     Dosage: 12 MG
     Route: 041
     Dates: start: 20190302, end: 20190304
  3. CARBIMAZOLE [Concomitant]
     Active Substance: CARBIMAZOLE
     Dosage: UNK
  4. RANITIDINE [Concomitant]
     Active Substance: RANITIDINE
     Dosage: UNK
  5. COCODAMOL [Concomitant]
     Active Substance: ACETAMINOPHEN\CODEINE PHOSPHATE
     Dosage: UNK
  6. PROPRANOLOL [Concomitant]
     Active Substance: PROPRANOLOL HYDROCHLORIDE
     Dosage: UNK
  7. ALENDRONIC ACID [Concomitant]
     Active Substance: ALENDRONIC ACID
     Dosage: UNK
  8. TOPIRAMATE [Concomitant]
     Active Substance: TOPIRAMATE
     Dosage: UNK
  9. MIRTAZAPINE [Concomitant]
     Active Substance: MIRTAZAPINE
     Dosage: UNK
  10. SOLIFENACIN [Concomitant]
     Active Substance: SOLIFENACIN
     Dosage: UNK
  11. LACTULOSE [Concomitant]
     Active Substance: LACTULOSE
     Dosage: UNK
  12. GABAPENTIN [Concomitant]
     Active Substance: GABAPENTIN
     Dosage: UNK
  13. AMITRIPTYLINE [Concomitant]
     Active Substance: AMITRIPTYLINE
     Dosage: UNK
  14. BACLOFEN [Concomitant]
     Active Substance: BACLOFEN
     Dosage: UNK
  15. VITAMIN D [Concomitant]
     Active Substance: VITAMIN D NOS
     Dosage: UNK

REACTIONS (10)
  - Subdural haematoma [Fatal]
  - Immune thrombocytopenia [Fatal]
  - Subdural haemorrhage [Fatal]
  - Loss of consciousness [Unknown]
  - Pneumonia [Unknown]
  - Graves^ disease [Unknown]
  - Contusion [Unknown]
  - Fall [Unknown]
  - Infection [Unknown]
  - Vomiting [Unknown]

NARRATIVE: CASE EVENT DATE: 20190701
